FAERS Safety Report 13856690 (Version 1)
Quarter: 2017Q3

REPORT INFORMATION
  Report Type: Spontaneous
  Country: US (occurrence: US)
  Receive Date: 20170810
  Receipt Date: 20170810
  Transmission Date: 20171127
  Serious: No
  Sender: FDA-Public Use
  Company Number: US-ROCHE-1337152

PATIENT
  Age: 8 Year
  Sex: Female

DRUGS (1)
  1. TAMIFLU [Suspect]
     Active Substance: OSELTAMIVIR PHOSPHATE
     Indication: PRODUCT USED FOR UNKNOWN INDICATION
     Route: 065

REACTIONS (9)
  - Fatigue [Unknown]
  - Gastrointestinal disorder [Unknown]
  - Appetite disorder [Unknown]
  - Restlessness [Unknown]
  - Mental disorder [Unknown]
  - Somnolence [Unknown]
  - Nervousness [Unknown]
  - Insomnia [Unknown]
  - Feeling abnormal [Unknown]
